FAERS Safety Report 21396651 (Version 1)
Quarter: 2022Q3

REPORT INFORMATION
  Report Type: Spontaneous
  Country: US (occurrence: US)
  Receive Date: 20220930
  Receipt Date: 20220930
  Transmission Date: 20221026
  Serious: Yes (Hospitalization, Other)
  Sender: FDA-Public Use
  Company Number: US-PFIZER INC-PV202200066500

PATIENT
  Age: 65 Year
  Sex: Male

DRUGS (5)
  1. METRONIDAZOLE [Suspect]
     Active Substance: METRONIDAZOLE
     Indication: Pseudomonas infection
     Dosage: 1 G EVERY 12 HR
     Route: 042
     Dates: start: 19810614
  2. METRONIDAZOLE [Suspect]
     Active Substance: METRONIDAZOLE
     Indication: Bacterial infection
     Dosage: 1.0 G TWICE DAILY, GIVEN 12 HR APART
     Route: 042
  3. METRONIDAZOLE [Suspect]
     Active Substance: METRONIDAZOLE
     Dosage: 250 MG EVERY 12 HOURS
     Route: 042
  4. AMIKACIN [Concomitant]
     Active Substance: AMIKACIN
     Indication: Pseudomonas infection
     Dosage: UNK
     Dates: start: 19810614
  5. AMIKACIN [Concomitant]
     Active Substance: AMIKACIN
     Indication: Bacterial infection

REACTIONS (3)
  - Hallucination [Unknown]
  - Confusional state [Unknown]
  - Agitation [Unknown]

NARRATIVE: CASE EVENT DATE: 19810617
